FAERS Safety Report 8397030-4 (Version None)
Quarter: 2012Q2

REPORT INFORMATION
  Report Type: 
  Country: None (occurrence: None)
  Receive Date: 20120530
  Receipt Date: 20120523
  Transmission Date: 20120825
  Serious: No
  Sender: FDA-Public Use
  Company Number: US-BAYER-2012-052130

PATIENT
  Age: 44 Year
  Sex: Female
  Weight: 88 kg

DRUGS (4)
  1. CALCIUM +VIT D [Concomitant]
  2. MULTI-VITAMIN [Concomitant]
  3. ALEVE (CAPLET) [Suspect]
     Dosage: UNK
  4. ALEVE (CAPLET) [Suspect]
     Dosage: BOTTLE COUNT 250S
     Route: 048
     Dates: start: 20120523, end: 20120523

REACTIONS (4)
  - HYPERSENSITIVITY [None]
  - EYE DISCHARGE [None]
  - URTICARIA [None]
  - EYE SWELLING [None]
